FAERS Safety Report 16011754 (Version 1)
Quarter: 2019Q1

REPORT INFORMATION
  Report Type: Spontaneous
  Country: US (occurrence: US)
  Receive Date: 20190227
  Receipt Date: 20190227
  Transmission Date: 20190418
  Serious: Yes (Other)
  Sender: FDA-Public Use
  Company Number: PHEH2019US008540

PATIENT
  Sex: Male

DRUGS (1)
  1. TASIGNA [Suspect]
     Active Substance: NILOTINIB
     Indication: CHRONIC MYELOID LEUKAEMIA
     Dosage: UNK UNK, BID
     Route: 048
     Dates: start: 20101212

REACTIONS (13)
  - Aortic valve stenosis [Unknown]
  - Dyspnoea [Unknown]
  - Acute coronary syndrome [Unknown]
  - Coronary artery disease [Unknown]
  - Vitreous floaters [Unknown]
  - Chest pain [Unknown]
  - Palpitations [Unknown]
  - Atrial fibrillation [Unknown]
  - Sleep apnoea syndrome [Unknown]
  - Supraventricular tachycardia [Unknown]
  - Cardiac failure congestive [Unknown]
  - Vision blurred [Unknown]
  - Gastrooesophageal reflux disease [Unknown]
